FAERS Safety Report 9270203 (Version 1)
Quarter: 2013Q2

REPORT INFORMATION
  Report Type: Spontaneous
  Country: FR (occurrence: FR)
  Receive Date: 20130503
  Receipt Date: 20130503
  Transmission Date: 20140414
  Serious: Yes (Hospitalization)
  Sender: FDA-Public Use
  Company Number: FR-GLAXOSMITHKLINE-B0887103A

PATIENT
  Age: 66 Year
  Sex: Male

DRUGS (9)
  1. ZINNAT [Suspect]
     Indication: COUGH
     Dosage: 500MG TWICE PER DAY
     Route: 048
     Dates: start: 20130325, end: 20130401
  2. PLAVIX [Suspect]
     Indication: PRODUCT USED FOR UNKNOWN INDICATION
     Dosage: 75MG PER DAY
     Route: 048
     Dates: end: 20130404
  3. BRONCHODUAL [Concomitant]
     Indication: COUGH
  4. AUGMENTIN [Concomitant]
     Indication: COUGH
     Dosage: 1G THREE TIMES PER DAY
     Dates: start: 20130402
  5. APROVEL [Concomitant]
     Indication: PRODUCT USED FOR UNKNOWN INDICATION
  6. ELISOR [Concomitant]
     Indication: PRODUCT USED FOR UNKNOWN INDICATION
  7. STAGID [Concomitant]
     Indication: PRODUCT USED FOR UNKNOWN INDICATION
  8. MIOREL [Concomitant]
     Indication: PRODUCT USED FOR UNKNOWN INDICATION
  9. TAVANIC [Concomitant]
     Dates: start: 20120403

REACTIONS (3)
  - Neutropenia [Recovered/Resolved]
  - White blood cell count decreased [Recovered/Resolved]
  - Drug ineffective [Unknown]
